FAERS Safety Report 9240409 (Version 1)
Quarter: 2013Q1

REPORT INFORMATION
  Report Type: Spontaneous
  Country: US (occurrence: None)
  Receive Date: 20121107
  Receipt Date: 20121107
  Transmission Date: 20140127
  Serious: Yes (Hospitalization)
  Sender: FDA-Public Use
  Company Number: 2012HGS-003754

PATIENT
  Age: 62 Year
  Sex: Female

DRUGS (1)
  1. BENLYSTA [Suspect]
     Dosage: EXP. DATE. MAY 13 + JUN
     Route: 041
     Dates: start: 20120417, end: 20120529

REACTIONS (6)
  - Sepsis [None]
  - Urinary tract infection [None]
  - Dehydration [None]
  - Vomiting [None]
  - Nausea [None]
  - Diarrhoea [None]
